FAERS Safety Report 7742150 (Version 2)
Quarter: 2012Q4

REPORT INFORMATION
  Report Type: 
  Country: FR (occurrence: FR)
  Receive Date: 20101228
  Receipt Date: 20121218
  Transmission Date: 20130627
  Serious: Yes (Hospitalization)
  Sender: FDA-Public Use
  Company Number: FR-MERCK-1012FRA00131

PATIENT
  Age: 75 Year
  Sex: Female

DRUGS (12)
  1. JANUMET [Suspect]
     Indication: TYPE 2 DIABETES MELLITUS
     Dosage: 1000mg-50
     Route: 048
     Dates: start: 201007, end: 20101012
  2. CILOXAN [Suspect]
     Route: 047
     Dates: start: 20100914, end: 20101012
  3. INFLUENZA VIRUS VACCINE [Suspect]
     Indication: IMMUNISATION
     Dosage: 1 U, ONCE
     Route: 058
     Dates: start: 20101005, end: 20101005
  4. SIMVASTATIN [Concomitant]
     Route: 048
     Dates: start: 2007
  5. AVLOCARDYL [Concomitant]
     Dates: start: 2007
  6. NEURONTIN [Concomitant]
     Dates: start: 2007
  7. LAROXYL [Concomitant]
     Dates: start: 2007
  8. RIVOTRIL [Concomitant]
     Dates: start: 2007
  9. SEROPLEX [Concomitant]
     Dates: start: 2007
  10. AMOROLFINE [Concomitant]
     Dates: start: 2007
  11. IMOVANE [Concomitant]
  12. TRIFLUCAN [Concomitant]
     Indication: TONGUE ULCERATION
     Dates: start: 20101008

REACTIONS (4)
  - Thrombocytopenia [Unknown]
  - Tongue ulceration [None]
  - Ecchymosis [None]
  - Purpura [None]
